FAERS Safety Report 14405277 (Version 3)
Quarter: 2018Q1

REPORT INFORMATION
  Report Type: Report from Study
  Country: CN (occurrence: CN)
  Receive Date: 20180118
  Receipt Date: 20180219
  Transmission Date: 20180509
  Serious: Yes (Other)
  Sender: FDA-Public Use
  Company Number: CN-ROCHE-2058151

PATIENT
  Sex: Male
  Weight: 70 kg

DRUGS (1)
  1. AVASTIN [Suspect]
     Active Substance: BEVACIZUMAB
     Indication: COLON CANCER
     Route: 041
     Dates: start: 20160717, end: 20171226

REACTIONS (2)
  - Intestinal obstruction [Not Recovered/Not Resolved]
  - Hernia [Not Recovered/Not Resolved]
